FAERS Safety Report 10196840 (Version 1)
Quarter: 2014Q2

REPORT INFORMATION
  Report Type: Spontaneous
  Country: US (occurrence: US)
  Receive Date: 20140527
  Receipt Date: 20140527
  Transmission Date: 20141212
  Serious: Yes (Other)
  Sender: FDA-Public Use
  Company Number: US-ASTRAZENECA-2014SE34712

PATIENT
  Sex: Female

DRUGS (2)
  1. SEROQUEL [Suspect]
     Indication: SLEEP DISORDER
     Dosage: UNK HS
     Route: 048
     Dates: start: 2009, end: 2012
  2. SEROQUEL [Suspect]
     Indication: SLEEP DISORDER
     Route: 048

REACTIONS (12)
  - Bursa injury [Unknown]
  - Stab wound [Unknown]
  - Diabetic ketoacidosis [Unknown]
  - Anaphylactic reaction [Unknown]
  - Gravitational oedema [Unknown]
  - Blood cholesterol abnormal [Unknown]
  - Toxicity to various agents [Unknown]
  - Glomerular filtration rate abnormal [Unknown]
  - Abasia [Unknown]
  - Restless legs syndrome [Unknown]
  - Intentional product misuse [Unknown]
  - Intentional product misuse [Unknown]
